FAERS Safety Report 21965334 (Version 2)
Quarter: 2023Q4

REPORT INFORMATION
  Report Type: Spontaneous
  Country: IT (occurrence: IT)
  Receive Date: 20230208
  Receipt Date: 20231108
  Transmission Date: 20240110
  Serious: Yes (Hospitalization)
  Sender: FDA-Public Use
  Company Number: IT-MINISAL02-905528

PATIENT
  Age: 61 Year
  Sex: Male

DRUGS (5)
  1. METFORMIN [Suspect]
     Active Substance: METFORMIN HYDROCHLORIDE
     Indication: Diabetes mellitus
     Dosage: UNK
     Route: 065
     Dates: start: 20180301
  2. ALLOPURINOL [Concomitant]
     Active Substance: ALLOPURINOL
     Indication: Product used for unknown indication
     Dosage: UNK
     Route: 065
  3. GLIMEPIRIDE [Concomitant]
     Active Substance: GLIMEPIRIDE
     Indication: Product used for unknown indication
     Dosage: UNK
     Route: 065
  4. LEVOTHYROXINE [Concomitant]
     Active Substance: LEVOTHYROXINE
     Indication: Product used for unknown indication
     Dosage: UNK
     Route: 065
  5. PROPRANOLOL [Concomitant]
     Active Substance: PROPRANOLOL HYDROCHLORIDE
     Indication: Product used for unknown indication
     Dosage: UNK
     Route: 065

REACTIONS (5)
  - Vomiting [Recovering/Resolving]
  - Metabolic acidosis [Recovering/Resolving]
  - Diarrhoea [Recovering/Resolving]
  - Malaise [Recovering/Resolving]
  - Nausea [Recovering/Resolving]

NARRATIVE: CASE EVENT DATE: 20220418
